FAERS Safety Report 14107382 (Version 1)
Quarter: 2017Q4

REPORT INFORMATION
  Report Type: Spontaneous
  Country: JP (occurrence: JP)
  Receive Date: 20171019
  Receipt Date: 20171019
  Transmission Date: 20180321
  Serious: Yes (Other)
  Sender: FDA-Public Use
  Company Number: JP-ASTRAZENECA-2017SF05369

PATIENT
  Sex: Female

DRUGS (4)
  1. DIOVAN [Concomitant]
     Active Substance: VALSARTAN
     Dosage: DOSE UNKNOWN
     Route: 048
  2. BAYASPIRIN [Concomitant]
     Active Substance: ASPIRIN
     Dosage: DOSE UNKNOWN
     Route: 048
  3. CILOSTAZOL. [Concomitant]
     Active Substance: CILOSTAZOL
     Dosage: DOSE UNKNOWN
     Route: 048
  4. CRESTOR [Suspect]
     Active Substance: ROSUVASTATIN CALCIUM
     Dosage: DOSE UNKNOWN
     Route: 048

REACTIONS (2)
  - Deafness [Unknown]
  - Asthenia [Unknown]
